FAERS Safety Report 7314779-2 (Version None)
Quarter: 2011Q1

REPORT INFORMATION
  Report Type: 
  Country: None (occurrence: None)
  Receive Date: 20110225
  Receipt Date: 20101230
  Transmission Date: 20110831
  Serious: No
  Sender: FDA-Public Use
  Company Number: US-MYLANLABS-2010S1022442

PATIENT
  Age: 32 Year
  Sex: Female
  Weight: 54.43 kg

DRUGS (1)
  1. AMNESTEEM [Suspect]
     Indication: ACNE
     Route: 048
     Dates: start: 20100802, end: 20101206

REACTIONS (2)
  - ARTHRALGIA [None]
  - MYALGIA [None]
